FAERS Safety Report 18326002 (Version 2)
Quarter: 2020Q4

REPORT INFORMATION
  Report Type: Spontaneous
  Country: DE (occurrence: DE)
  Receive Date: 20200929
  Receipt Date: 20201015
  Transmission Date: 20210113
  Serious: Yes (Other)
  Sender: FDA-Public Use
  Company Number: DE-UCBSA-2020038742

PATIENT
  Age: 79 Year
  Sex: Male
  Weight: 65 kg

DRUGS (18)
  1. LEVETIRACETAM. [Suspect]
     Active Substance: LEVETIRACETAM
     Indication: EPILEPSY
     Dosage: 500 MG IN MORNING AND 750 MG AT NIGHT
     Route: 048
     Dates: start: 20190913, end: 2019
  2. LAMOTRIGIN [Suspect]
     Active Substance: LAMOTRIGINE
     Dosage: 25 MILLIGRAM, 3X/DAY (TID)
     Dates: start: 20161108
  3. LAMOTRIGIN [Suspect]
     Active Substance: LAMOTRIGINE
     Dosage: 150 MILLIGRAM, 2X/DAY (BID)
     Dates: start: 20180211
  4. GLIVEC [Concomitant]
     Active Substance: IMATINIB MESYLATE
     Indication: CHRONIC MYELOID LEUKAEMIA
     Dosage: 100 MILLIGRAM, 4X/DAY (QID)
     Dates: start: 20020211
  5. LAMOTRIGIN [Suspect]
     Active Substance: LAMOTRIGINE
     Indication: EPILEPSY
     Dosage: 25 MILLIGRAM, ONCE DAILY (QD)
     Dates: start: 20120626
  6. LAMOTRIGIN [Suspect]
     Active Substance: LAMOTRIGINE
     Dosage: 75 MILLIGRAM, 2X/DAY (BID)
     Dates: start: 201702
  7. SIMVA [Concomitant]
     Active Substance: SIMVASTATIN
     Indication: BLOOD CHOLESTEROL
     Dosage: 20 MILLIGRAM, ONCE DAILY (QD)
  8. RAMIPRIL-ISIS [Concomitant]
     Indication: BLOOD PRESSURE MEASUREMENT
     Dosage: DURING OR AFTER EATING
     Dates: start: 20190705
  9. TASIGNA [Concomitant]
     Active Substance: NILOTINIB
     Indication: PRODUCT USED FOR UNKNOWN INDICATION
     Dosage: 200 MG DAILY
     Dates: start: 201310
  10. GLIVEC [Concomitant]
     Active Substance: IMATINIB MESYLATE
     Dosage: 400 MG DAILY
     Dates: start: 20140701, end: 20141222
  11. TAVOR (LORAZEPAM) [Concomitant]
     Active Substance: LORAZEPAM
     Indication: PRODUCT USED FOR UNKNOWN INDICATION
     Dosage: 1 MILLIGRAM, AS NEEDED (PRN)
  12. LEVETIRACETAM. [Suspect]
     Active Substance: LEVETIRACETAM
     Dosage: 500 MG IN MORNING AND 1000 MG AT NIGHT
     Route: 048
     Dates: start: 20191030
  13. LAMOTRIGIN [Suspect]
     Active Substance: LAMOTRIGINE
     Dosage: 125 MILLIGRAM, 2X/DAY (BID)
     Dates: start: 20171220
  14. ZOPICLODURA [Concomitant]
     Active Substance: ZOPICLONE
     Indication: SLEEP DISORDER
     Dosage: 7.5 MICROGRAM, AS NEEDED (PRN)
  15. ASS ABZ PROTECT [Concomitant]
     Indication: PROPHYLAXIS
     Dosage: 100 MILLIGRAM, ONCE DAILY (QD)
  16. LEVETIRACETAM. [Suspect]
     Active Substance: LEVETIRACETAM
     Dosage: 500 MG IN MORNING AND 750 MG AT NIGHT
     Route: 048
     Dates: start: 20200219
  17. LAMOTRIGIN [Suspect]
     Active Substance: LAMOTRIGINE
     Dosage: 300 MILLIGRAM, 2X/DAY (BID)
     Dates: start: 20171107
  18. ASS ABZ PROTECT [Concomitant]
     Indication: THROMBOSIS PROPHYLAXIS

REACTIONS (8)
  - Basal cell carcinoma [Not Recovered/Not Resolved]
  - Adverse reaction [Unknown]
  - Depression [Not Recovered/Not Resolved]
  - Product use issue [Unknown]
  - Gait disturbance [Not Recovered/Not Resolved]
  - Fatigue [Not Recovered/Not Resolved]
  - Vertigo positional [Not Recovered/Not Resolved]
  - Dizziness [Not Recovered/Not Resolved]

NARRATIVE: CASE EVENT DATE: 20190913
